FAERS Safety Report 5375082-3 (Version None)
Quarter: 2007Q2

REPORT INFORMATION
  Report Type: 
  Country: None (occurrence: None)
  Receive Date: 20070625
  Receipt Date: 20070320
  Transmission Date: 20071010
  Serious: Yes (Hospitalization)
  Sender: FDA-Public Use
  Company Number: 07P-163-0362581-00

PATIENT
  Age: 61 Year
  Sex: Male
  Weight: 109 kg

DRUGS (6)
  1. HUMIRA [Suspect]
     Indication: PSORIATIC ARTHROPATHY
     Dosage: 40 MG, 1 IN 2 WK, SUBCUTANEOUS
     Route: 058
     Dates: start: 20060301, end: 20070101
  2. DIOVAN [Concomitant]
  3. ALLOPURINOL [Concomitant]
  4. CELECOXIB [Concomitant]
  5. ZOCOR [Concomitant]
  6. VICODIN [Concomitant]

REACTIONS (1)
  - LUNG NEOPLASM MALIGNANT [None]
